FAERS Safety Report 7970599-7 (Version None)
Quarter: 2011Q4

REPORT INFORMATION
  Report Type: 
  Country: None (occurrence: None)
  Receive Date: 20111212
  Receipt Date: 20111207
  Transmission Date: 20120403
  Serious: Yes (Other)
  Sender: FDA-Public Use
  Company Number: FR-EISAI INC-E2090-01891-SPO-FR

PATIENT
  Sex: Male

DRUGS (3)
  1. ZONEGRAN [Suspect]
     Indication: EPILEPSY
     Dosage: 100 MG DAILY
     Route: 048
     Dates: end: 20100201
  2. KEPPRA [Concomitant]
     Dosage: 2 MG DAILY
     Route: 048
  3. ZONEGRAN [Suspect]
     Dosage: 200 MG DAILY
     Route: 048
     Dates: start: 20100201, end: 20100201

REACTIONS (2)
  - PURPURA [None]
  - PSORIASIS [None]
